FAERS Safety Report 23448683 (Version 2)
Quarter: 2024Q1

REPORT INFORMATION
  Report Type: Report from Study
  Country: US (occurrence: US)
  Receive Date: 20240127
  Receipt Date: 20240227
  Transmission Date: 20240409
  Serious: Yes (Other)
  Sender: FDA-Public Use
  Company Number: US-UCBSA-2023061109

PATIENT
  Age: 60 Year
  Sex: Female

DRUGS (1)
  1. BIMEKIZUMAB [Suspect]
     Active Substance: BIMEKIZUMAB
     Indication: Psoriasis
     Dosage: 320 MILLIGRAM, EV 4 WEEKS (Q28 DAYS STARTER DOSING)
     Dates: start: 20231212

REACTIONS (5)
  - Diabetes mellitus inadequate control [Unknown]
  - Weight increased [Not Recovered/Not Resolved]
  - Peripheral swelling [Not Recovered/Not Resolved]
  - Inflammation [Unknown]
  - Headache [Unknown]

NARRATIVE: CASE EVENT DATE: 20231201
